FAERS Safety Report 12746073 (Version 1)
Quarter: 2016Q3

REPORT INFORMATION
  Report Type: Report from Study
  Country: FR (occurrence: FR)
  Receive Date: 20160915
  Receipt Date: 20160915
  Transmission Date: 20161109
  Serious: Yes (Hospitalization, Other)
  Sender: FDA-Public Use
  Company Number: FR-PFIZER INC-2013081365

PATIENT
  Age: 22 Year
  Sex: Male

DRUGS (12)
  1. POLARAMINE [Concomitant]
     Active Substance: DEXCHLORPHENIRAMINE MALEATE
     Indication: PREMEDICATION
     Dosage: 1 DF (VIAL)
  2. SPECIAFOLDINE [Concomitant]
     Active Substance: FOLIC ACID
  3. INEXIUM /01479302/ [Concomitant]
     Active Substance: ESOMEPRAZOLE MAGNESIUM
  4. TOPALGIC [Concomitant]
     Active Substance: TRAMADOL
  5. ACUPAN [Concomitant]
     Active Substance: NEFOPAM HYDROCHLORIDE
  6. ATGAM [Suspect]
     Active Substance: EQUINE THYMOCYTE IMMUNE GLOBULIN
     Indication: BONE MARROW FAILURE
     Dosage: 2400 MG PER DAY
     Route: 042
     Dates: start: 20111129, end: 20111202
  7. ZELITREX [Concomitant]
     Active Substance: VALACYCLOVIR HYDROCHLORIDE
  8. SOLUDECADRON [Concomitant]
     Active Substance: DEXAMETHASONE SODIUM PHOSPHATE
     Indication: PREMEDICATION
     Dosage: 1 DF (VIAL)
  9. AVLOCARDYL /00030001/ [Concomitant]
     Active Substance: PROPRANOLOL HYDROCHLORIDE
  10. CICLOSPORIN A [Concomitant]
     Active Substance: CYCLOSPORINE
     Indication: BONE MARROW FAILURE
     Dosage: 3 MG/KG, UNK
  11. OFLOCET /00731801/ [Concomitant]
     Active Substance: OFLOXACIN
  12. BACTRIM [Concomitant]
     Active Substance: SULFAMETHOXAZOLE\TRIMETHOPRIM

REACTIONS (2)
  - Sepsis [Not Recovered/Not Resolved]
  - Gastrointestinal haemorrhage [Recovered/Resolved]

NARRATIVE: CASE EVENT DATE: 20120916
